FAERS Safety Report 6132259-7 (Version None)
Quarter: 2009Q1

REPORT INFORMATION
  Report Type: 
  Country: None (occurrence: None)
  Receive Date: 20090325
  Receipt Date: 20090320
  Transmission Date: 20090719
  Serious: Yes (Death, Life-Threatening, Hospitalization)
  Sender: FDA-Public Use
  Company Number: FR-AVENTIS-200911100FR

PATIENT
  Age: 76 Year
  Sex: Female

DRUGS (14)
  1. ARAVA [Suspect]
     Indication: RHEUMATOID ARTHRITIS
     Route: 048
     Dates: start: 20080502, end: 20080908
  2. TARDYFERON                         /00023503/ [Concomitant]
     Indication: IRON DEFICIENCY
     Route: 048
  3. FLECAINE [Concomitant]
     Indication: ARRHYTHMIA
     Route: 048
  4. CORTANCYL [Concomitant]
     Indication: RHEUMATOID ARTHRITIS
     Route: 048
  5. NEXIUM [Concomitant]
     Indication: PROPHYLAXIS
     Route: 048
     Dates: end: 20080908
  6. FUROSEMIDE [Concomitant]
     Indication: OEDEMA DUE TO CARDIAC DISEASE
     Route: 048
     Dates: end: 20080908
  7. LEXOMIL [Concomitant]
     Indication: ANXIETY
     Route: 048
     Dates: end: 20080908
  8. TANAKAN                            /01003103/ [Concomitant]
     Route: 048
     Dates: end: 20080908
  9. VASTAREL [Concomitant]
     Route: 048
     Dates: end: 20080908
  10. TEMESTA                            /00273201/ [Concomitant]
     Indication: ANXIETY
     Route: 048
     Dates: end: 20080908
  11. RENITEC                            /00574901/ [Concomitant]
     Route: 048
     Dates: end: 20080908
  12. ENDOTELON                          /00811401/ [Concomitant]
     Indication: VENOUS INSUFFICIENCY
     Route: 048
     Dates: end: 20080908
  13. CALCIUM WITH VITAMIN D             /01233101/ [Concomitant]
     Indication: OSTEOPOROSIS
     Route: 048
     Dates: end: 20080908
  14. ULCAR                              /00434701/ [Concomitant]
     Indication: GASTRODUODENAL ULCER
     Route: 048
     Dates: end: 20080908

REACTIONS (2)
  - PANCYTOPENIA [None]
  - SEPSIS [None]
